FAERS Safety Report 22249345 (Version 2)
Quarter: 2023Q2

REPORT INFORMATION
  Report Type: Report from Study
  Country: BR (occurrence: BR)
  Receive Date: 20230425
  Receipt Date: 20230505
  Transmission Date: 20230721
  Serious: Yes (Other)
  Sender: FDA-Public Use
  Company Number: BR-002147023-NVSC2023BR093171

PATIENT
  Age: 56 Year
  Sex: Female
  Weight: 70 kg

DRUGS (3)
  1. KISQALI [Suspect]
     Active Substance: RIBOCICLIB
     Indication: Breast cancer
     Dosage: UNK
     Route: 065
  2. KISQALI [Suspect]
     Active Substance: RIBOCICLIB
     Indication: Brain neoplasm
     Dosage: UNK
     Route: 065
     Dates: start: 202202
  3. KISQALI [Suspect]
     Active Substance: RIBOCICLIB
     Dosage: 4 DOSAGE FORM, QD
     Route: 048
     Dates: start: 202203

REACTIONS (3)
  - Pneumonitis [Recovering/Resolving]
  - Cough [Recovering/Resolving]
  - Product use in unapproved indication [Unknown]

NARRATIVE: CASE EVENT DATE: 20220201
